FAERS Safety Report 25130159 (Version 1)
Quarter: 2025Q1

REPORT INFORMATION
  Report Type: Spontaneous
  Country: ES (occurrence: ES)
  Receive Date: 20250327
  Receipt Date: 20250327
  Transmission Date: 20250409
  Serious: Yes (Life-Threatening, Hospitalization, Other)
  Sender: BAXTER
  Company Number: None

PATIENT
  Age: 45 Year
  Sex: Male

DRUGS (4)
  1. DEXMEDETOMIDINE [Interacting]
     Active Substance: DEXMEDETOMIDINE
     Indication: Alcohol withdrawal syndrome
     Route: 042
     Dates: start: 20250108, end: 20250115
  2. DIAZEPAM [Interacting]
     Active Substance: DIAZEPAM
     Indication: Alcohol withdrawal syndrome
     Route: 042
     Dates: start: 20250108, end: 20250117
  3. MIDAZOLAM [Interacting]
     Active Substance: MIDAZOLAM
     Indication: Alcohol withdrawal syndrome
     Route: 042
     Dates: start: 20250108, end: 20250108
  4. DIAZEPAM [Concomitant]
     Active Substance: DIAZEPAM
     Indication: Alcohol withdrawal syndrome
     Route: 042
     Dates: start: 20250108, end: 20250108

REACTIONS (2)
  - Overdose [Recovered/Resolved]
  - Acute respiratory failure [Recovered/Resolved]

NARRATIVE: CASE EVENT DATE: 20250108
